FAERS Safety Report 7931021 (Version 2)
Quarter: 2014Q2

REPORT INFORMATION
  Report Type: Spontaneous
  Country: None (occurrence: None)
  Receive Date: 20110412
  Receipt Date: 20140416
  Transmission Date: 20141212
  Serious: Yes (Hospitalization, Other)
  Sender: FDA-Public Use
  Company Number: AUR-APL-2011-01204

PATIENT
  Age: 77 Year
  Sex: Female

DRUGS (6)
  1. PERINDOPRIL (PERINDOPRIL) [Suspect]
     Indication: PRODUCT USED FOR UNKNOWN INDICATION
     Dosage: 5MG, 1 D
     Route: 048
  2. CORDARONE (AMIODARONE HYDROCHLORIDE)/ORAL/TABLET/200 MILLIGRAMS(S) [Suspect]
     Indication: PRODUCT USED FOR UNKNOWN INDICATION
     Dosage: 5 IN 1 WK
     Route: 048
     Dates: end: 20110117
  3. ATENOLOL (ATENOLOL) [Suspect]
     Indication: PRODUCT USED FOR UNKNOWN INDICATION
     Dosage: 50 MG, 1 D
     Route: 048
     Dates: end: 20110117
  4. INDAPAMIDE [Suspect]
     Indication: PRODUCT USED FOR UNKNOWN INDICATION
     Dosage: 1 D
     Route: 048
  5. PREVISCAN [Suspect]
     Indication: ARRHYTHMIA
     Dosage: 10MG, 1 D
     Route: 048
     Dates: start: 20101207, end: 20110115
  6. BISOPROLOL FUMARATE [Suspect]
     Indication: ARRHYTHMIA
     Dosage: 2.5MG, 1 D
     Route: 048
     Dates: start: 20101207, end: 20110117

REACTIONS (2)
  - Bradycardia [None]
  - Blood pressure diastolic decreased [None]
